FAERS Safety Report 13942363 (Version 1)
Quarter: 2017Q3

REPORT INFORMATION
  Report Type: Spontaneous
  Country: IT (occurrence: IT)
  Receive Date: 20170907
  Receipt Date: 20170907
  Transmission Date: 20171127
  Serious: Yes (Other)
  Sender: FDA-Public Use
  Company Number: IT-009507513-1709ITA000412

PATIENT

DRUGS (1)
  1. RIBAVIRIN. [Suspect]
     Active Substance: RIBAVIRIN
     Indication: HEPATITIS C
     Dosage: 800 MG - 1000 MG - 1200 MG (DOSE WEIGHT-BASED)
     Route: 048

REACTIONS (1)
  - Gastrointestinal haemorrhage [Unknown]
